FAERS Safety Report 4269476-7 (Version None)
Quarter: 2004Q1

REPORT INFORMATION
  Report Type: 
  Country: None (occurrence: None)
  Receive Date: 20040112
  Receipt Date: 20040112
  Transmission Date: 20041129
  Serious: Yes (Hospitalization)
  Sender: FDA-Public Use
  Company Number: None

PATIENT
  Age: 76 Year
  Sex: Male

DRUGS (7)
  1. FUROSEMIDE [Suspect]
     Indication: HYPERTENSION
     Dosage: 20 MG Q AM
     Dates: start: 20020601
  2. OSCAL [Concomitant]
  3. LORATADINE [Concomitant]
  4. PLAVIX [Concomitant]
  5. ZOCOR [Concomitant]
  6. LACTULOSE [Concomitant]
  7. NIFEDIPINE [Concomitant]

REACTIONS (2)
  - ASTHENIA [None]
  - DIZZINESS [None]
